FAERS Safety Report 10264730 (Version 3)
Quarter: 2014Q4

REPORT INFORMATION
  Report Type: Spontaneous
  Country: US (occurrence: US)
  Receive Date: 20140627
  Receipt Date: 20141209
  Transmission Date: 20150528
  Serious: Yes (Death, Other)
  Sender: FDA-Public Use
  Company Number: US-009507513-1406USA012627

PATIENT
  Sex: Male

DRUGS (1)
  1. EMEND [Suspect]
     Active Substance: APREPITANT
     Dosage: STRENGTH: 125/80
     Route: 048

REACTIONS (3)
  - Death [Fatal]
  - Movement disorder [Unknown]
  - Neoplasm malignant [Unknown]
